FAERS Safety Report 8254611-6 (Version None)
Quarter: 2012Q2

REPORT INFORMATION
  Report Type: 
  Country: None (occurrence: None)
  Receive Date: 20120403
  Receipt Date: 20120322
  Transmission Date: 20120825
  Serious: Yes (Hospitalization)
  Sender: FDA-Public Use
  Company Number: US-CELGENEUS-163-20785-12032586

PATIENT
  Sex: Female
  Weight: 50.394 kg

DRUGS (8)
  1. COUMADIN [Concomitant]
     Route: 065
  2. CELEXA [Concomitant]
     Route: 065
  3. DIFLUCAN [Concomitant]
     Route: 065
  4. ZOFRAN [Concomitant]
     Route: 065
  5. NEURONTIN [Concomitant]
     Route: 065
  6. VALTREX [Concomitant]
     Route: 065
  7. THALOMID [Suspect]
     Indication: MULTIPLE MYELOMA
     Dosage: 400 MILLIGRAM
     Route: 048
     Dates: start: 20120201
  8. PROTONIX [Concomitant]
     Route: 065

REACTIONS (2)
  - ANAEMIA [None]
  - RENAL DISORDER [None]
